FAERS Safety Report 8625353-X (Version None)
Quarter: 2012Q3

REPORT INFORMATION
  Report Type: 
  Country: None (occurrence: None)
  Receive Date: 20120827
  Receipt Date: 20120813
  Transmission Date: 20120928
  Serious: Yes (Hospitalization)
  Sender: FDA-Public Use
  Company Number: US-VERTEX PHARMACEUTICAL INC.-AE-2012-011519

PATIENT
  Sex: Female
  Weight: 83 kg

DRUGS (3)
  1. INCIVEK [Suspect]
     Indication: HEPATITIS C
     Dosage: 750 MG, TID
     Route: 048
     Dates: start: 20120727, end: 20120804
  2. PEGASYS [Suspect]
     Indication: HEPATITIS C
     Dosage: 180 UNK, UNK
     Route: 058
     Dates: start: 20120727, end: 20120804
  3. RIBAVIRIN [Suspect]
     Indication: HEPATITIS C
     Dosage: 600 MG, BID
     Route: 048
     Dates: start: 20120727, end: 20120804

REACTIONS (18)
  - ORAL DISCOMFORT [None]
  - DIARRHOEA [None]
  - ANXIETY [None]
  - FATIGUE [None]
  - RASH PRURITIC [None]
  - NAUSEA [None]
  - DEHYDRATION [None]
  - TONGUE ULCERATION [None]
  - ANAL FISSURE [None]
  - HYPOAESTHESIA [None]
  - THROAT IRRITATION [None]
  - HAEMORRHOIDS [None]
  - VOMITING [None]
  - THERMOANAESTHESIA [None]
  - APTYALISM [None]
  - COGNITIVE DISORDER [None]
  - INSOMNIA [None]
  - COUGH [None]
